FAERS Safety Report 10420094 (Version 2)
Quarter: 2014Q3

REPORT INFORMATION
  Report Type: Spontaneous
  Country: NO (occurrence: NO)
  Receive Date: 20140829
  Receipt Date: 20140829
  Transmission Date: 20150326
  Serious: Yes (Hospitalization, Other)
  Sender: FDA-Public Use
  Company Number: NO-ELI_LILLY_AND_COMPANY-NO201405006860

PATIENT
  Age: 48 Year
  Sex: Female

DRUGS (2)
  1. ZYPADHERA [Suspect]
     Active Substance: OLANZAPINE PAMOATE
     Indication: SCHIZOPHRENIA
     Dosage: 1 DF, UNKNOWN
     Route: 030
     Dates: start: 20130521
  2. ZYPADHERA [Suspect]
     Active Substance: OLANZAPINE PAMOATE
     Dosage: 405 MG, 2/M (EVERY 2 WEEKS)
     Route: 030

REACTIONS (8)
  - Gait disturbance [Recovered/Resolved]
  - Dizziness [Recovered/Resolved]
  - Restlessness [Recovered/Resolved]
  - Heart rate increased [Recovered/Resolved]
  - Delirium [Recovered/Resolved]
  - Injection related reaction [Recovered/Resolved]
  - Prescribed overdose [Unknown]
  - Nausea [Recovered/Resolved]

NARRATIVE: CASE EVENT DATE: 20140520
